FAERS Safety Report 5899162-9 (Version None)
Quarter: 2008Q3

REPORT INFORMATION
  Report Type: 
  Country: None (occurrence: None)
  Receive Date: 20080925
  Receipt Date: 20080919
  Transmission Date: 20090109
  Serious: Yes (Other)
  Sender: FDA-Public Use
  Company Number: US-B.I. PHARMACEUTICALS,INC./RIDGEFIELD-2008-BP-14715BP

PATIENT
  Age: 79 Year
  Sex: Male

DRUGS (5)
  1. DULCOLAX [Suspect]
     Indication: CONSTIPATION
     Dosage: 10MG
     Route: 048
     Dates: start: 20080914, end: 20080915
  2. DULCOLAX [Suspect]
     Dosage: 5MG
     Route: 048
     Dates: start: 20080914, end: 20080915
  3. COUMADIN [Concomitant]
     Indication: ATRIAL FIBRILLATION
     Dosage: 5MG
     Route: 048
  4. ZOCOR [Concomitant]
     Indication: HYPERCHOLESTEROLAEMIA
     Dosage: 20MG
     Route: 048
  5. NIACIN [Concomitant]
     Indication: BLOOD TRIGLYCERIDES INCREASED
     Dosage: 5000MG
     Route: 048

REACTIONS (2)
  - DRUG INEFFECTIVE [None]
  - INTERNATIONAL NORMALISED RATIO INCREASED [None]
